FAERS Safety Report 8267690-7 (Version None)
Quarter: 2012Q2

REPORT INFORMATION
  Report Type: 
  Country: None (occurrence: None)
  Receive Date: 20120405
  Receipt Date: 20120405
  Transmission Date: 20120825
  Serious: No
  Sender: FDA-Public Use
  Company Number: None

PATIENT
  Age: 65 Year
  Sex: Male
  Weight: 92.2 kg

DRUGS (1)
  1. ALLOPURINOL [Suspect]
     Dosage: 100 MG EVERY DAY PO
     Route: 048
     Dates: start: 20111213, end: 20120124

REACTIONS (1)
  - STEVENS-JOHNSON SYNDROME [None]
